FAERS Safety Report 7527500-X (Version None)
Quarter: 2011Q2

REPORT INFORMATION
  Report Type: 
  Country: None (occurrence: None)
  Receive Date: 20110527
  Receipt Date: 20110513
  Transmission Date: 20111010
  Serious: Yes (Other)
  Sender: FDA-Public Use
  Company Number: AUR-APL-2011-01711

PATIENT
  Age: 74 Year
  Sex: Male
  Weight: 80 kg

DRUGS (7)
  1. SIMVASTATIN [Suspect]
     Indication: ACUTE MYOCARDIAL INFARCTION
     Dosage: 40MG-ORAL
     Route: 048
     Dates: start: 20101203, end: 20101211
  2. EFIENT 10 (PRASUGREL HCL) [Concomitant]
  3. PANTAZOL 20MG (PANTOPRAZOLE SODIUM) [Concomitant]
  4. ASPIRIN [Concomitant]
  5. TOREM 10 (TORASEMIDE) [Concomitant]
  6. XARELTO 5 (RIVAROXABAN) [Concomitant]
  7. BISOPROLOL FUMARATE [Concomitant]

REACTIONS (1)
  - RHABDOMYOLYSIS [None]
